FAERS Safety Report 9281316 (Version 2)
Quarter: 2013Q2

REPORT INFORMATION
  Report Type: Spontaneous
  Country: CH (occurrence: CH)
  Receive Date: 20130509
  Receipt Date: 20130531
  Transmission Date: 20140414
  Serious: Yes (Hospitalization)
  Sender: FDA-Public Use
  Company Number: CH-BRISTOL-MYERS SQUIBB COMPANY-18876441

PATIENT
  Age: 50 Year
  Sex: Female

DRUGS (4)
  1. ERBITUX [Suspect]
     Indication: HEREDITARY NON-POLYPOSIS COLORECTAL CANCER SYNDROME
     Dates: start: 20121031, end: 20130425
  2. ERBITUX [Suspect]
     Indication: RECTAL ADENOCARCINOMA
     Dates: start: 20121031, end: 20130425
  3. CAMPTO [Suspect]
     Indication: RECTAL ADENOCARCINOMA
     Dates: start: 20121031, end: 20130425
  4. CAMPTO [Suspect]
     Indication: HEREDITARY NON-POLYPOSIS COLORECTAL CANCER SYNDROME
     Dates: start: 20121031, end: 20130425

REACTIONS (1)
  - Colitis [Recovered/Resolved]
